FAERS Safety Report 8266575-X (Version None)
Quarter: 2012Q2

REPORT INFORMATION
  Report Type: 
  Country: None (occurrence: None)
  Receive Date: 20120406
  Receipt Date: 20120321
  Transmission Date: 20120825
  Serious: Yes (Hospitalization)
  Sender: FDA-Public Use
  Company Number: IT-BAXTER-2011BH023485

PATIENT
  Sex: Male

DRUGS (9)
  1. SINESTIC [Concomitant]
     Route: 065
  2. PREDNISONE TAB [Concomitant]
     Route: 048
  3. CYTOXAN [Suspect]
     Indication: ANTI-NEUTROPHIL CYTOPLASMIC ANTIBODY POSITIVE VASCULITIS
     Route: 042
     Dates: start: 20110607, end: 20110607
  4. IG VENA N [Concomitant]
     Indication: ANTI-NEUTROPHIL CYTOPLASMIC ANTIBODY POSITIVE VASCULITIS
     Route: 042
  5. DELORAZEPAM [Concomitant]
     Route: 065
  6. SUCRALFIN [Concomitant]
     Route: 065
  7. BACTRIM [Concomitant]
     Route: 048
  8. PANTOPRAZOLE SODIUM [Concomitant]
     Route: 065
  9. METOCLOPRAMIDE HYDROCHLORIDE [Concomitant]
     Route: 048

REACTIONS (1)
  - CLOSTRIDIUM DIFFICILE COLITIS [None]
